FAERS Safety Report 14369025 (Version 1)
Quarter: 2018Q1

REPORT INFORMATION
  Report Type: Spontaneous
  Country: US (occurrence: US)
  Receive Date: 20180109
  Receipt Date: 20180109
  Transmission Date: 20180509
  Serious: No
  Sender: FDA-Public Use
  Company Number: US-DRREDDYS-USA/USA/16/0085959

PATIENT
  Age: 42 Year
  Sex: Male
  Weight: 55.34 kg

DRUGS (1)
  1. HABITROL [Suspect]
     Active Substance: NICOTINE
     Indication: SMOKING CESSATION THERAPY
     Route: 062
     Dates: start: 201607

REACTIONS (2)
  - Treatment noncompliance [Unknown]
  - Nicotine dependence [Not Recovered/Not Resolved]
